FAERS Safety Report 8990672 (Version 1)
Quarter: 2012Q4

REPORT INFORMATION
  Report Type: Report from Study
  Country: FR (occurrence: FR)
  Receive Date: 20121228
  Receipt Date: 20121228
  Transmission Date: 20130627
  Serious: Yes (Other)
  Sender: FDA-Public Use
  Company Number: FR-ROCHE-1170265

PATIENT
  Age: 71 Year
  Sex: Female

DRUGS (6)
  1. RITUXIMAB [Suspect]
     Indication: CHRONIC LYMPHOCYTIC LEUKAEMIA
     Route: 065
     Dates: start: 20080708
  2. RITUXIMAB [Suspect]
     Route: 041
     Dates: start: 20080930
  3. CYCLOPHOSPHAMID [Suspect]
     Indication: CHRONIC LYMPHOCYTIC LEUKAEMIA
     Route: 065
     Dates: start: 20080708
  4. CYCLOPHOSPHAMID [Suspect]
     Route: 065
     Dates: start: 20080930, end: 20081002
  5. FLUDARABINE [Suspect]
     Indication: CHRONIC LYMPHOCYTIC LEUKAEMIA
     Route: 065
     Dates: start: 20080708
  6. FLUDARABINE [Suspect]
     Route: 065
     Dates: start: 20080930, end: 20081002

REACTIONS (1)
  - Renal cell carcinoma [Recovered/Resolved]
